FAERS Safety Report 23723224 (Version 1)
Quarter: 2024Q2

REPORT INFORMATION
  Report Type: Spontaneous
  Country: US (occurrence: US)
  Receive Date: 20240409
  Receipt Date: 20240409
  Transmission Date: 20240716
  Serious: No
  Sender: FDA-Public Use
  Company Number: US-HISAMITSU-2023-US-044843

PATIENT
  Age: 54 Year
  Sex: Female
  Weight: 58.06 kg

DRUGS (2)
  1. unspecified multivitamin [Concomitant]
  2. SALONPAS PAIN RELIEF [Suspect]
     Active Substance: MENTHOL\METHYL SALICYLATE
     Indication: Arthralgia
     Dosage: APPLIED 1 PATCH TO KNEE 1 TIME
     Route: 061
     Dates: start: 20231228, end: 20231229

REACTIONS (4)
  - Application site rash [Not Recovered/Not Resolved]
  - Application site pruritus [Not Recovered/Not Resolved]
  - Application site swelling [Not Recovered/Not Resolved]
  - Application site pain [Not Recovered/Not Resolved]

NARRATIVE: CASE EVENT DATE: 20231229
